FAERS Safety Report 8510128-2 (Version None)
Quarter: 2012Q3

REPORT INFORMATION
  Report Type: 
  Country: None (occurrence: None)
  Receive Date: 20120713
  Receipt Date: 20120709
  Transmission Date: 20120928
  Serious: Yes (Other)
  Sender: FDA-Public Use
  Company Number: JP-B.I. PHARMACEUTICALS,INC./RIDGEFIELD-2012-BP-13528NB

PATIENT
  Age: 70 Year
  Sex: Female

DRUGS (2)
  1. PRADAXA [Suspect]
     Indication: ATRIAL FIBRILLATION
     Dosage: 220 MG
     Route: 048
     Dates: start: 20120209
  2. VERAPAMIL HCL [Suspect]
     Indication: PALPITATIONS
     Route: 048
     Dates: start: 20111226

REACTIONS (3)
  - CARDIAC ABLATION [None]
  - COUGH [None]
  - DRUG INTERACTION [None]
